FAERS Safety Report 12250473 (Version 3)
Quarter: 2016Q2

REPORT INFORMATION
  Report Type: Spontaneous
  Country: US (occurrence: US)
  Receive Date: 20160408
  Receipt Date: 20160426
  Transmission Date: 20160815
  Serious: Yes (Other)
  Sender: FDA-Public Use
  Company Number: US-MDT-ADR-2016-00643

PATIENT
  Age: 61 Year
  Sex: Male

DRUGS (9)
  1. LIORESAL [Suspect]
     Active Substance: BACLOFEN
     Indication: MUSCLE SPASTICITY
     Dosage: 149.4MCG/DAY
     Route: 037
     Dates: end: 20160405
  2. BENAZEPRIL [Suspect]
     Active Substance: BENAZEPRIL HYDROCHLORIDE
  3. BYSTOLIC [Suspect]
     Active Substance: NEBIVOLOL HYDROCHLORIDE
  4. ALLOPURINOL. [Suspect]
     Active Substance: ALLOPURINOL
  5. TRAMADOL. [Suspect]
     Active Substance: TRAMADOL
  6. GABAPENTIN. [Suspect]
     Active Substance: GABAPENTIN
  7. ATORVASTATIN [Suspect]
     Active Substance: ATORVASTATIN
  8. CHLORTHALIDONE. [Suspect]
     Active Substance: CHLORTHALIDONE
  9. PLAVIX [Suspect]
     Active Substance: CLOPIDOGREL BISULFATE

REACTIONS (4)
  - Medical device site inflammation [Unknown]
  - Medical device site ulcer [Unknown]
  - Implant site cyst [Unknown]
  - Wound dehiscence [Unknown]

NARRATIVE: CASE EVENT DATE: 20160402
